FAERS Safety Report 4575562-4 (Version None)
Quarter: 2005Q1

REPORT INFORMATION
  Report Type: 
  Country: None (occurrence: None)
  Receive Date: 20050118
  Receipt Date: 20040628
  Transmission Date: 20050727
  Serious: Yes (Hospitalization, Other)
  Sender: FDA-Public Use
  Company Number: HQWYE763729JUN04

PATIENT
  Age: 52 Year
  Sex: Female
  Weight: 108.96 kg

DRUGS (3)
  1. PREMPRO [Suspect]
     Indication: HOT FLUSH
     Dosage: ORAL
     Route: 048
     Dates: end: 19990101
  2. UNSPECIFIED ANTIHYPERTENSIVE AGENT (UNSPECIFIEDANTIHYPERTENSIVE AGENT) [Concomitant]
  3. VENTOLIN (SALBUTAMOL SULFATE) [Concomitant]

REACTIONS (2)
  - BREAST CANCER FEMALE [None]
  - PAIN [None]
